FAERS Safety Report 6754806-4 (Version None)
Quarter: 2010Q2

REPORT INFORMATION
  Report Type: 
  Country: None (occurrence: None)
  Receive Date: 20100601
  Receipt Date: 20100311
  Transmission Date: 20101027
  Serious: Yes (Disabling)
  Sender: FDA-Public Use
  Company Number: LEO-2010-00162

PATIENT
  Age: 76 Year
  Sex: Female
  Weight: 75 kg

DRUGS (13)
  1. INNOHEP [Suspect]
     Indication: THROMBOSIS PROPHYLAXIS
     Dosage: (4500 IU), SUBCUTANEOUS
     Route: 058
     Dates: start: 20090917, end: 20091022
  2. ADALAT [Concomitant]
  3. TENORETIC 100 [Concomitant]
  4. XANAX [Concomitant]
  5. TARGOCID [Concomitant]
  6. ZOFRAN [Concomitant]
  7. ZANTAC [Concomitant]
  8. XEFO (LORNOXICAM) [Concomitant]
  9. VONCON (VANCOMYCIN HYDROCHLORIDE) [Concomitant]
  10. LONALGAL (CODEINE PHOSPHATE, PARACETAMOL) [Concomitant]
  11. APOTEL (PARACETAMOL) [Concomitant]
  12. SALOSPIR (ACETYLSALICYLIC ACID) [Concomitant]
  13. IDEOS (COLECALCIFEROL, CALCIUMN CARBONATE) [Concomitant]

REACTIONS (6)
  - ALANINE AMINOTRANSFERASE ABNORMAL [None]
  - ASPARTATE AMINOTRANSFERASE ABNORMAL [None]
  - GAMMA-GLUTAMYLTRANSFERASE ABNORMAL [None]
  - HAEMOGLOBIN DECREASED [None]
  - JOINT DISLOCATION [None]
  - POST PROCEDURAL COMPLICATION [None]
